FAERS Safety Report 12392451 (Version 2)
Quarter: 2017Q3

REPORT INFORMATION
  Report Type: Report from Study
  Country: CA (occurrence: CA)
  Receive Date: 20160523
  Receipt Date: 20170809
  Transmission Date: 20171127
  Serious: Yes (Hospitalization, Other)
  Sender: FDA-Public Use
  Company Number: CA-AMGEN-CANSL2016009089

PATIENT
  Age: 74 Year
  Sex: Female

DRUGS (5)
  1. INHIBACE PLUS [Concomitant]
     Active Substance: CILAZAPRIL ANHYDROUS\HYDROCHLOROTHIAZIDE
     Dosage: UNK
  2. PLAQUENIL [Concomitant]
     Active Substance: HYDROXYCHLOROQUINE SULFATE
     Dosage: UNK
  3. CORTISONE [Concomitant]
     Active Substance: CORTISONE\HYDROCORTISONE
     Dosage: UNK
  4. ENBREL [Suspect]
     Active Substance: ETANERCEPT
     Indication: RHEUMATOID ARTHRITIS
     Dosage: 50 MG, UNK
     Route: 065
     Dates: start: 20090810, end: 2017
  5. PREDNISONE. [Concomitant]
     Active Substance: PREDNISONE
     Dosage: UNK

REACTIONS (9)
  - Knee arthroplasty [Unknown]
  - Haemorrhage [Not Recovered/Not Resolved]
  - Localised infection [Recovered/Resolved]
  - Wheelchair user [Not Recovered/Not Resolved]
  - Limb injury [Unknown]
  - Cellulitis [Recovered/Resolved]
  - Fall [Unknown]
  - Malaise [Recovered/Resolved]
  - Pruritus [Not Recovered/Not Resolved]

NARRATIVE: CASE EVENT DATE: 2014
